FAERS Safety Report 7124644-1 (Version None)
Quarter: 2010Q4

REPORT INFORMATION
  Report Type: 
  Country: None (occurrence: None)
  Receive Date: 20101122
  Receipt Date: 20101122
  Transmission Date: 20110411
  Serious: Yes (Life-Threatening, Hospitalization, Other)
  Sender: FDA-Public Use
  Company Number: None

PATIENT
  Age: 90 Year
  Sex: Male
  Weight: 70.3075 kg

DRUGS (2)
  1. CELEXA [Suspect]
     Indication: DEPRESSION
     Dosage: .25ML DAILY PO
     Route: 048
     Dates: start: 20101101, end: 20101113
  2. CELEXA [Suspect]
     Indication: STRESS
     Dosage: .25ML DAILY PO
     Route: 048
     Dates: start: 20101101, end: 20101113

REACTIONS (14)
  - AGITATION [None]
  - ASTHENIA [None]
  - BLOOD POTASSIUM DECREASED [None]
  - BLOOD SODIUM DECREASED [None]
  - CONFUSIONAL STATE [None]
  - DEHYDRATION [None]
  - DELIRIUM [None]
  - DYSPNOEA [None]
  - ELECTROCARDIOGRAM QT INTERVAL ABNORMAL [None]
  - FALL [None]
  - FATIGUE [None]
  - IRRITABILITY [None]
  - PSYCHOMOTOR HYPERACTIVITY [None]
  - UNRESPONSIVE TO STIMULI [None]
